FAERS Safety Report 4862610-7 (Version None)
Quarter: 2005Q4

REPORT INFORMATION
  Report Type: 
  Country: None (occurrence: None)
  Receive Date: 20051221
  Receipt Date: 20051213
  Transmission Date: 20060501
  Serious: Yes (Hospitalization)
  Sender: FDA-Public Use
  Company Number: AU-ROCHE-428418

PATIENT
  Age: 55 Year
  Sex: Female
  Weight: 60 kg

DRUGS (2)
  1. ROCEPHIN [Suspect]
     Indication: DRUG USE FOR UNKNOWN INDICATION
     Route: 042
  2. KEFLEX [Concomitant]
     Indication: URINARY TRACT DISORDER
     Route: 048
     Dates: start: 20040304, end: 20040304

REACTIONS (2)
  - RASH ERYTHEMATOUS [None]
  - THROAT TIGHTNESS [None]
